FAERS Safety Report 12529314 (Version 3)
Quarter: 2017Q1

REPORT INFORMATION
  Report Type: Spontaneous
  Country: GR (occurrence: GR)
  Receive Date: 20160705
  Receipt Date: 20170308
  Transmission Date: 20170428
  Serious: Yes (Hospitalization, Other)
  Sender: FDA-Public Use
  Company Number: GR-009507513-1607GRC001416

PATIENT
  Age: 75 Year
  Sex: Female

DRUGS (10)
  1. NORVASC [Concomitant]
     Active Substance: AMLODIPINE BESYLATE
  2. LOPRESSOR [Concomitant]
     Active Substance: METOPROLOL TARTRATE
  3. SALOSPIR [Suspect]
     Active Substance: ASPIRIN
  4. XALATAN [Concomitant]
     Active Substance: LATANOPROST
  5. NEXIUM I.V. [Concomitant]
     Active Substance: ESOMEPRAZOLE SODIUM
  6. GLUCOPHAGE [Concomitant]
     Active Substance: METFORMIN HYDROCHLORIDE
  7. LIPTRUZET [Suspect]
     Active Substance: ATORVASTATIN CALCIUM\EZETIMIBE
     Dosage: 1 TABLET, QD
     Route: 048
     Dates: start: 20160619
  8. DIOVAN [Concomitant]
     Active Substance: VALSARTAN
  9. FRUMIL [Concomitant]
     Active Substance: AMILORIDE HYDROCHLORIDE\FUROSEMIDE
  10. XANAX [Concomitant]
     Active Substance: ALPRAZOLAM

REACTIONS (1)
  - Internal haemorrhage [Recovered/Resolved]

NARRATIVE: CASE EVENT DATE: 20160622
